FAERS Safety Report 24988921 (Version 3)
Quarter: 2025Q1

REPORT INFORMATION
  Report Type: Report from Study
  Country: CA (occurrence: CA)
  Receive Date: 20250220
  Receipt Date: 20250225
  Transmission Date: 20250408
  Serious: No
  Sender: ROCHE
  Company Number: CA-ROCHE-10000212975

PATIENT
  Sex: Male

DRUGS (2)
  1. OCREVUS [Suspect]
     Active Substance: OCRELIZUMAB
     Indication: Relapsing-remitting multiple sclerosis
     Dosage: 300 MG AT DAY 0 AND 14, THEN 600 MG EVERY 6 MONTHS
     Route: 042
     Dates: start: 20250203
  2. IBUPROFEN [Concomitant]
     Active Substance: IBUPROFEN

REACTIONS (1)
  - Influenza A virus test positive [Recovering/Resolving]
